FAERS Safety Report 25596911 (Version 1)
Quarter: 2025Q3

REPORT INFORMATION
  Report Type: Spontaneous
  Country: US (occurrence: US)
  Receive Date: 20250723
  Receipt Date: 20250723
  Transmission Date: 20251020
  Serious: Yes (Death)
  Sender: LABORATOIRES SERB
  Company Number: US-SERB S.A.S.-2181031

PATIENT
  Age: 64 Year
  Sex: Female

DRUGS (10)
  1. CYANOKIT [Suspect]
     Active Substance: HYDROXOCOBALAMIN
     Indication: Toxicity to various agents
  2. CYANOKIT [Suspect]
     Active Substance: HYDROXOCOBALAMIN
     Indication: Haemodynamic instability
  3. METHYLENE BLUE [Suspect]
     Active Substance: METHYLENE BLUE
  4. SERTRALINE [Suspect]
     Active Substance: SERTRALINE HYDROCHLORIDE
  5. TORSEMIDE [Suspect]
     Active Substance: TORSEMIDE
  6. AMLODIPINE [Suspect]
     Active Substance: AMLODIPINE BESYLATE
  7. APIXABAN [Suspect]
     Active Substance: APIXABAN
  8. CALCIUM [Suspect]
     Active Substance: CALCIUM
  9. INSULIN NOS [Suspect]
     Active Substance: INSULIN NOS
  10. UNSPECIFIED INGREDIENT [Suspect]
     Active Substance: UNSPECIFIED INGREDIENT

REACTIONS (2)
  - Treatment delayed [Fatal]
  - Product use in unapproved indication [Unknown]
